FAERS Safety Report 9531566 (Version 3)
Quarter: 2013Q4

REPORT INFORMATION
  Report Type: Spontaneous
  Country: JP (occurrence: JP)
  Receive Date: 20130918
  Receipt Date: 20131022
  Transmission Date: 20140711
  Serious: Yes (Other)
  Sender: FDA-Public Use
  Company Number: JP-PFIZER INC-2013268637

PATIENT
  Age: 66 Year
  Sex: Male
  Weight: 54 kg

DRUGS (15)
  1. LYRICA [Suspect]
     Dosage: 75 MG, 2X/DAY (IN THE MORNING AND THE EVENING)
     Route: 048
     Dates: start: 20130913, end: 20130914
  2. URSO [Concomitant]
     Dosage: 100 MG, 2X/DAY
     Route: 048
  3. SUPACAL [Concomitant]
     Dosage: 40 MG, 3X/DAY
     Route: 048
  4. EURODIN [Concomitant]
     Dosage: 2 MG, 1X/DAY
     Route: 048
  5. FLUITRAN [Concomitant]
     Dosage: 0.5 MG ONCE DAILY
     Route: 048
  6. LANSOPRAZOLE [Concomitant]
     Dosage: 1 DF, 1X/DAY
     Route: 048
  7. HEAVY MAGNESIUM OXIDE [Concomitant]
     Dosage: 2.0 MG, UNK
  8. BLOPRESS [Concomitant]
     Dosage: 1/2 TABLET ONCE DAILY
     Route: 048
  9. MOHRUS [Concomitant]
     Route: 062
  10. CALONAL [Concomitant]
     Dosage: 600 MG, 3X/DAY
     Route: 048
  11. CALONAL [Concomitant]
     Dosage: 200 MG, 3X/DAY
     Route: 048
  12. ALASENN [Concomitant]
     Dosage: UNK
     Route: 062
  13. VERCUSRON [Concomitant]
     Dosage: 800 MG 5 TIMES DAILY
     Route: 048
  14. METHYCOBAL [Concomitant]
     Indication: PROPHYLAXIS
     Dosage: 500 MG, 3X/DAY
     Route: 048
  15. PANCREATIN [Concomitant]
     Dosage: 1.5 G, 3X/DAY

REACTIONS (6)
  - IIIrd nerve paralysis [Unknown]
  - Vision blurred [Not Recovered/Not Resolved]
  - Diplopia [Unknown]
  - Dizziness [Unknown]
  - Feeling abnormal [Unknown]
  - Headache [Recovering/Resolving]
